FAERS Safety Report 13462995 (Version 3)
Quarter: 2017Q2

REPORT INFORMATION
  Report Type: Spontaneous
  Country: US (occurrence: US)
  Receive Date: 20170420
  Receipt Date: 20170621
  Transmission Date: 20170830
  Serious: Yes (Other)
  Sender: FDA-Public Use
  Company Number: US-BAYER-2017-070222

PATIENT
  Sex: Female

DRUGS (1)
  1. CLIMARA PRO [Suspect]
     Active Substance: ESTRADIOL\LEVONORGESTREL
     Indication: HORMONE REPLACEMENT THERAPY
     Dosage: 0.060 MG/24HR, CONT
     Route: 062
     Dates: start: 201704

REACTIONS (3)
  - Drug ineffective [None]
  - Product adhesion issue [None]
  - Postmenopausal haemorrhage [None]
